FAERS Safety Report 9002727 (Version 1)
Quarter: 2013Q1

REPORT INFORMATION
  Report Type: Spontaneous
  Country: US (occurrence: US)
  Receive Date: 20130107
  Receipt Date: 20130107
  Transmission Date: 20140127
  Serious: No
  Sender: FDA-Public Use
  Company Number: US-GLAXOSMITHKLINE-A0995840A

PATIENT
  Age: 59 Year
  Sex: Female
  Weight: 108.96 kg

DRUGS (6)
  1. BENLYSTA [Suspect]
     Indication: SYSTEMIC LUPUS ERYTHEMATOSUS
     Route: 042
     Dates: start: 20120420, end: 20120727
  2. PLAQUENIL [Concomitant]
     Dosage: 200MG PER DAY
  3. CYMBALTA [Concomitant]
     Dosage: 60MG PER DAY
  4. METOPROLOL [Concomitant]
     Indication: HYPERTENSION
  5. OXYCODONE [Concomitant]
  6. BENADRYL [Concomitant]

REACTIONS (14)
  - Vitreous floaters [Not Recovered/Not Resolved]
  - Influenza like illness [Recovered/Resolved]
  - Dysgeusia [Recovered/Resolved]
  - Abdominal pain upper [Recovered/Resolved]
  - Pain [Recovered/Resolved]
  - Malaise [Recovered/Resolved]
  - Infusion site pain [Recovered/Resolved]
  - Anxiety [Not Recovered/Not Resolved]
  - Nausea [Recovered/Resolved]
  - Depressed mood [Recovered/Resolved]
  - Crying [Recovered/Resolved]
  - Diarrhoea [Recovered/Resolved]
  - Fear [Recovered/Resolved]
  - Hypersensitivity [Unknown]
